FAERS Safety Report 6383365-3 (Version None)
Quarter: 2009Q4

REPORT INFORMATION
  Report Type: 
  Country: None (occurrence: None)
  Receive Date: 20091001
  Receipt Date: 20090525
  Transmission Date: 20100525
  Serious: Yes (Hospitalization)
  Sender: FDA-Public Use
  Company Number: PHHO2007SE09612

PATIENT
  Sex: Male

DRUGS (1)
  1. ENTACAPONE-LEVODOPA-CARBIDOPA E-L-C+TAB [Suspect]
     Indication: PARKINSON'S DISEASE
     Dosage: 4 X 100
     Route: 048
     Dates: start: 20061212

REACTIONS (5)
  - BLADDER CANCER [None]
  - BLOOD URINE PRESENT [None]
  - MICTURITION URGENCY [None]
  - SURGERY [None]
  - URINARY TRACT INFECTION [None]
